FAERS Safety Report 16216058 (Version 1)
Quarter: 2019Q2

REPORT INFORMATION
  Report Type: Spontaneous
  Country: US (occurrence: US)
  Receive Date: 20190419
  Receipt Date: 20190419
  Transmission Date: 20190711
  Serious: Yes (Other)
  Sender: FDA-Public Use
  Company Number: US-PHARMING-PHAUS2019000258

PATIENT

DRUGS (14)
  1. SODIUM CHLORIDE. [Concomitant]
     Active Substance: SODIUM CHLORIDE
  2. RANITIDINE. [Concomitant]
     Active Substance: RANITIDINE
  3. BIOTIN [Concomitant]
     Active Substance: BIOTIN
  4. NORETHIN-ETH ESTRA-FERROUS FUM [Concomitant]
  5. TAKHZYRO [Concomitant]
     Active Substance: LANADELUMAB-FLYO
  6. CETIRIZINE [Concomitant]
     Active Substance: CETIRIZINE HYDROCHLORIDE
  7. STERILE WATER [Concomitant]
     Active Substance: WATER
  8. CLONIDINE. [Concomitant]
     Active Substance: CLONIDINE
  9. DIVALPROEX SODIUM. [Concomitant]
     Active Substance: DIVALPROEX SODIUM
  10. RUCONEST [Suspect]
     Active Substance: HUMAN C1-ESTERASE INHIBITOR
     Indication: HEREDITARY ANGIOEDEMA
     Dosage: 4200 IU, AS NEEDED
     Route: 042
     Dates: start: 20181004
  11. EPINEPHRINE. [Concomitant]
     Active Substance: EPINEPHRINE
  12. CITALOPRAM [Concomitant]
     Active Substance: CITALOPRAM HYDROBROMIDE
  13. COLESEVELAM [Concomitant]
     Active Substance: COLESEVELAM
  14. CLONAZEPAM. [Concomitant]
     Active Substance: CLONAZEPAM

REACTIONS (1)
  - Therapeutic product effect incomplete [Unknown]
